FAERS Safety Report 10846685 (Version 2)
Quarter: 2015Q1

REPORT INFORMATION
  Report Type: Report from Study
  Country: BG (occurrence: BG)
  Receive Date: 20150220
  Receipt Date: 20150302
  Transmission Date: 20150721
  Serious: Yes (Hospitalization)
  Sender: FDA-Public Use
  Company Number: BG-TEVA-539472ISR

PATIENT
  Age: 25 Year
  Sex: Female
  Weight: 80 kg

DRUGS (4)
  1. LAQUINIMOD SODIUM [Suspect]
     Active Substance: LAQUINIMOD SODIUM
     Indication: RELAPSING-REMITTING MULTIPLE SCLEROSIS
     Dosage: DBPC: LAQUINIMOD 0.6 MG, 1.2 MG OR PLACEBO
     Route: 048
     Dates: start: 20150116
  2. MILGAMMA N [Suspect]
     Active Substance: BENFOTIAMINE\CYANOCOBALAMIN\PYRIDOXINE HYDROCHLORIDE
     Route: 048
  3. AGAPURIN SR 400 [Suspect]
     Active Substance: PENTOXIFYLLINE
     Route: 048
  4. TIZANIDINE (TIZANIDINE) [Suspect]
     Active Substance: TIZANIDINE
     Route: 048

REACTIONS (4)
  - Poisoning deliberate [None]
  - Intentional overdose [Recovered/Resolved]
  - Affective disorder [Recovered/Resolved]
  - Toxicity to various agents [None]

NARRATIVE: CASE EVENT DATE: 20150125
